FAERS Safety Report 5865929-6 (Version None)
Quarter: 2008Q3

REPORT INFORMATION
  Report Type: 
  Country: None (occurrence: None)
  Receive Date: 20080829
  Receipt Date: 20080820
  Transmission Date: 20090109
  Serious: Yes (Hospitalization, Disabling, Other)
  Sender: FDA-Public Use
  Company Number: FR-GENENTECH-266607

PATIENT
  Sex: Female

DRUGS (5)
  1. LUCENTIS [Suspect]
     Indication: MACULAR DEGENERATION
     Route: 031
  2. RIVOTRIL [Concomitant]
     Indication: DRUG USE FOR UNKNOWN INDICATION
  3. VASOBRAL [Concomitant]
     Indication: DRUG USE FOR UNKNOWN INDICATION
  4. DIHYDROERGOCRYPTINE MESILATE [Concomitant]
     Indication: DRUG USE FOR UNKNOWN INDICATION
     Dosage: UNK
     Dates: start: 19800101
  5. FLECAINE [Concomitant]
     Indication: DRUG USE FOR UNKNOWN INDICATION
     Dosage: UNK
     Dates: start: 19980101

REACTIONS (3)
  - FALL [None]
  - MOBILITY DECREASED [None]
  - TRANSIENT ISCHAEMIC ATTACK [None]
